FAERS Safety Report 24324316 (Version 1)
Quarter: 2024Q3

REPORT INFORMATION
  Report Type: Spontaneous
  Country: JP (occurrence: None)
  Receive Date: 20240916
  Receipt Date: 20240916
  Transmission Date: 20241016
  Serious: Yes (Death, Other)
  Sender: ASTRAZENECA
  Company Number: 2024A208679

PATIENT
  Age: 93 Year
  Sex: Male

DRUGS (2)
  1. ONDEXXYA [Suspect]
     Active Substance: ANDEXANET ALFA
     Indication: Subdural haematoma
     Dosage: DOSE UNKNOWN
     Route: 042
  2. UNSPECIFIED INGREDIENT [Concomitant]
     Active Substance: UNSPECIFIED INGREDIENT
     Dosage: DOSE UNKNOWN
     Route: 048

REACTIONS (3)
  - Death [Fatal]
  - Cerebral infarction [Unknown]
  - Haemorrhage [Unknown]
